FAERS Safety Report 7579897 (Version 3)
Quarter: 2015Q1

REPORT INFORMATION
  Report Type: Spontaneous
  Country: US (occurrence: US)
  Receive Date: 20100910
  Receipt Date: 20150325
  Transmission Date: 20150721
  Serious: Yes (Hospitalization, Congenital Anomaly, Other)
  Sender: FDA-Public Use
  Company Number: US-ELI_LILLY_AND_COMPANY-US201008008822

PATIENT
  Sex: Female

DRUGS (4)
  1. PROZAC [Suspect]
     Active Substance: FLUOXETINE HYDROCHLORIDE
     Indication: PRODUCT USED FOR UNKNOWN INDICATION
     Route: 064
  2. VICODIN [Concomitant]
     Active Substance: ACETAMINOPHEN\HYDROCODONE BITARTRATE
     Indication: PAIN
  3. VICODIN [Concomitant]
     Active Substance: ACETAMINOPHEN\HYDROCODONE BITARTRATE
     Indication: PAIN
  4. PROZAC [Suspect]
     Active Substance: FLUOXETINE HYDROCHLORIDE
     Indication: PRODUCT USED FOR UNKNOWN INDICATION
     Route: 064

REACTIONS (7)
  - Mediastinal haematoma [Recovered/Resolved]
  - Foetal distress syndrome [Unknown]
  - Endocarditis bacterial [Recovered/Resolved]
  - Small for dates baby [Unknown]
  - Foetal exposure during pregnancy [Recovered/Resolved]
  - Encephalopathy [Unknown]
  - Fallot^s tetralogy [Recovering/Resolving]
